FAERS Safety Report 16267813 (Version 5)
Quarter: 2020Q3

REPORT INFORMATION
  Report Type: Spontaneous
  Country: JP (occurrence: JP)
  Receive Date: 20190503
  Receipt Date: 20200919
  Transmission Date: 20201102
  Serious: Yes (Hospitalization, Other)
  Sender: FDA-Public Use
  Company Number: JP-UNITED THERAPEUTICS-UNT-2015-005151

PATIENT
  Age: 42 Year
  Sex: Female
  Weight: 46.3 kg

DRUGS (19)
  1. REVATIO [Concomitant]
     Active Substance: SILDENAFIL CITRATE
     Indication: HEART DISEASE CONGENITAL
  2. LUPRAC [Concomitant]
     Active Substance: TORSEMIDE
     Indication: RIGHT VENTRICULAR FAILURE
     Dosage: UNK
     Route: 048
  3. WARFARIN [Concomitant]
     Active Substance: WARFARIN
     Indication: PULMONARY ARTERIAL HYPERTENSION
     Dosage: UNK
     Route: 048
     Dates: start: 201506
  4. FAMOTIDINE. [Concomitant]
     Active Substance: FAMOTIDINE
     Indication: PROPHYLAXIS
     Dosage: UNK
     Route: 048
     Dates: start: 20170722, end: 20170726
  5. REMODULIN [Suspect]
     Active Substance: TREPROSTINIL
     Indication: PULMONARY ARTERIAL HYPERTENSION
     Dosage: 0.0433 ?G/KG, CONTINUING
     Route: 041
     Dates: start: 20140930
  6. REVATIO [Concomitant]
     Active Substance: SILDENAFIL CITRATE
     Indication: PULMONARY ARTERIAL HYPERTENSION
     Dosage: UNK
     Route: 048
     Dates: start: 201306
  7. OPSUMIT [Concomitant]
     Active Substance: MACITENTAN
     Indication: HEART DISEASE CONGENITAL
  8. REMODULIN [Suspect]
     Active Substance: TREPROSTINIL
     Dosage: 0.0743 ?G/KG, CONTINUING
     Route: 041
  9. FLUITRAN [Concomitant]
     Active Substance: TRICHLORMETHIAZIDE
     Indication: RIGHT VENTRICULAR FAILURE
     Dosage: UNK
     Route: 048
  10. WARFARIN [Concomitant]
     Active Substance: WARFARIN
     Indication: HEART DISEASE CONGENITAL
  11. OPSUMIT [Concomitant]
     Active Substance: MACITENTAN
     Indication: PULMONARY ARTERIAL HYPERTENSION
     Dosage: UNK
     Route: 048
     Dates: start: 20151110
  12. SLOW K [Concomitant]
     Active Substance: POTASSIUM CHLORIDE
     Indication: HYPOKALAEMIA
     Dosage: UNK
     Route: 048
  13. FERROUS SULFATE. [Concomitant]
     Active Substance: FERROUS SULFATE
     Indication: IRON DEFICIENCY ANAEMIA
     Dosage: UNK
     Route: 048
     Dates: end: 201601
  14. REMODULIN [Suspect]
     Active Substance: TREPROSTINIL
     Indication: ATRIAL SEPTAL DEFECT
     Dosage: 0.0555 ?G/KG, CONTINUING
     Route: 041
  15. REMODULIN [Suspect]
     Active Substance: TREPROSTINIL
     Dosage: 0.0648 ?G/KG, CONTINUING
     Route: 041
  16. ALDACTONE A [Concomitant]
     Active Substance: SPIRONOLACTONE
     Indication: OEDEMA
     Dosage: UNK
     Route: 048
     Dates: start: 20140909
  17. EPOPROSTENOL. [Suspect]
     Active Substance: EPOPROSTENOL
     Indication: PULMONARY ARTERIAL HYPERTENSION
     Dosage: 43.3 NG/KG/MIN, UNK
     Route: 065
  18. REMODULIN [Suspect]
     Active Substance: TREPROSTINIL
     Indication: HEART DISEASE CONGENITAL
     Dosage: 0.0629 ?G/KG, CONTINUING
     Route: 041
  19. FEBURIC [Concomitant]
     Active Substance: FEBUXOSTAT
     Indication: HYPERURICAEMIA
     Dosage: UNK
     Route: 048

REACTIONS (6)
  - Vascular device infection [Recovered/Resolved]
  - Urticaria [Recovered/Resolved]
  - Pyrexia [Recovered/Resolved]
  - Vascular device infection [Recovered/Resolved]
  - Vomiting [Recovered/Resolved]
  - Nausea [Recovered/Resolved]

NARRATIVE: CASE EVENT DATE: 20140930
